FAERS Safety Report 7586047-5 (Version None)
Quarter: 2011Q2

REPORT INFORMATION
  Report Type: 
  Country: None (occurrence: None)
  Receive Date: 20110629
  Receipt Date: 20110629
  Transmission Date: 20111010
  Serious: Yes (Death)
  Sender: FDA-Public Use
  Company Number: None

PATIENT
  Sex: Male
  Weight: 82.1 kg

DRUGS (14)
  1. MIRALAX [Concomitant]
  2. DALTEPARIN SODIUM [Concomitant]
  3. ERBITUX [Suspect]
     Indication: TONGUE CARCINOMA STAGE IV
     Dosage: 784MG --26MG INFUSED- 1X IV DRIP
     Route: 041
     Dates: start: 20110624, end: 20110624
  4. ERBITUX [Suspect]
  5. ERBITUX [Suspect]
  6. MAGIC MOUTHWASH [Concomitant]
  7. ONDANSETRON [Concomitant]
  8. PROMETHAZINE [Concomitant]
  9. DEXTROSE 5%/ 0.45% NACL [Concomitant]
  10. PROCHLORPERAZINE TAB [Concomitant]
  11. MORPHINE [Concomitant]
  12. DIPHENHYDRAMINE SOLUTION, MAALOX SUSPENSION 1:1:1 MIXTURE [Concomitant]
  13. PANTOPRAZOLE [Concomitant]
  14. METOCLOPRAMIDE [Concomitant]

REACTIONS (1)
  - CARDIO-RESPIRATORY ARREST [None]
